FAERS Safety Report 16006994 (Version 2)
Quarter: 2019Q4

REPORT INFORMATION
  Report Type: Spontaneous
  Country: US (occurrence: US)
  Receive Date: 20190226
  Receipt Date: 20191219
  Transmission Date: 20200122
  Serious: Yes (Other)
  Sender: FDA-Public Use
  Company Number: US-PFIZER INC-2019076312

PATIENT
  Age: 41 Year
  Sex: Female
  Weight: 81.65 kg

DRUGS (2)
  1. ZYVOX [Suspect]
     Active Substance: LINEZOLID
     Indication: STAPHYLOCOCCAL INFECTION
     Dosage: 1 600 MG TABLET, TWICE A DAY
     Route: 048
     Dates: start: 2003
  2. ZYVOX [Suspect]
     Active Substance: LINEZOLID
     Indication: STOMACH MASS

REACTIONS (2)
  - Coma [Unknown]
  - Infection reactivation [Unknown]

NARRATIVE: CASE EVENT DATE: 2014
